FAERS Safety Report 4377124-0 (Version None)
Quarter: 2004Q2

REPORT INFORMATION
  Report Type: 
  Country: None (occurrence: None)
  Receive Date: 20040615
  Receipt Date: 20040603
  Transmission Date: 20050107
  Serious: Yes (Death)
  Sender: FDA-Public Use
  Company Number: BR-BRISTOL-MYERS SQUIBB COMPANY-12606505

PATIENT
  Age: 67 Year
  Sex: Male
  Weight: 66 kg

DRUGS (2)
  1. TAXOL [Suspect]
     Indication: ADENOCARCINOMA
     Route: 042
     Dates: start: 20031027, end: 20031027
  2. CARBOPLATIN [Concomitant]

REACTIONS (1)
  - DEATH [None]
